FAERS Safety Report 17385663 (Version 3)
Quarter: 2020Q3

REPORT INFORMATION
  Report Type: Report from Study
  Country: DE (occurrence: DE)
  Receive Date: 20200206
  Receipt Date: 20200911
  Transmission Date: 20201102
  Serious: Yes (Hospitalization, Other)
  Sender: FDA-Public Use
  Company Number: DE-PFIZER INC-2018312543

PATIENT
  Sex: Female

DRUGS (18)
  1. XARELTO [Concomitant]
     Active Substance: RIVAROXABAN
     Dosage: 20 MG, UNK
  2. METHOTREXATE SODIUM. [Suspect]
     Active Substance: METHOTREXATE SODIUM
     Dosage: 7.5 MG, WEEKLY
  3. ROACTEMRA [Interacting]
     Active Substance: TOCILIZUMAB
     Dosage: 162 MG, WEEKLY
     Route: 058
     Dates: start: 20160907, end: 20180102
  4. ROACTEMRA [Interacting]
     Active Substance: TOCILIZUMAB
     Dosage: 162 MG (EVERY 2 WEEKS)
     Route: 058
     Dates: start: 2020
  5. DEKRISTOL [Concomitant]
     Active Substance: CHOLECALCIFEROL
     Dosage: 20000 IU, UNK (EVERY 3 WEEKS)
  6. TURMERIC CURCUMIN [CURCUMA LONGA] [Concomitant]
     Dosage: UNK
  7. ROACTEMRA [Interacting]
     Active Substance: TOCILIZUMAB
     Indication: RHEUMATOID ARTHRITIS
     Dosage: 162 MG, WEEKLY
     Route: 058
     Dates: start: 20160318, end: 201606
  8. ROACTEMRA [Interacting]
     Active Substance: TOCILIZUMAB
     Dosage: 162 MG, WEEKLY
     Route: 058
     Dates: start: 20180109
  9. METHOTREXATE SODIUM. [Suspect]
     Active Substance: METHOTREXATE SODIUM
     Dosage: 10 MG, WEEKLY
  10. ESCITALOPRAM [Concomitant]
     Active Substance: ESCITALOPRAM OXALATE
     Dosage: 15 MG, 1X/DAY
  11. CORTISONE [Suspect]
     Active Substance: CORTISONE
     Dosage: 3 MG, 1X/DAY
  12. CORTISONE [Suspect]
     Active Substance: CORTISONE
     Dosage: 10 MG, UNK
  13. CORTISONE [Suspect]
     Active Substance: CORTISONE
     Dosage: 2.5 MG, 1X/DAY
  14. MARCUMAR [Interacting]
     Active Substance: PHENPROCOUMON
     Indication: VENOUS THROMBOSIS LIMB
     Dosage: UNK
     Route: 048
     Dates: start: 20160415
  15. DEKRISTOL [Concomitant]
     Active Substance: CHOLECALCIFEROL
     Dosage: 20000 IU, WEEKLY
  16. IRON [Concomitant]
     Active Substance: IRON
     Dosage: UNK
  17. CORTISONE [Suspect]
     Active Substance: CORTISONE
     Dosage: 5 MG, 1X/DAY
  18. FOLIC ACID. [Concomitant]
     Active Substance: FOLIC ACID
     Dosage: UNK

REACTIONS (20)
  - Movement disorder [Recovering/Resolving]
  - Nausea [Recovered/Resolved]
  - Haemoglobin decreased [Not Recovered/Not Resolved]
  - Fall [Unknown]
  - Inflammatory marker decreased [Not Recovered/Not Resolved]
  - Gamma-glutamyltransferase increased [Recovering/Resolving]
  - Drug interaction [Unknown]
  - Upper limb fracture [Not Recovered/Not Resolved]
  - Venous thrombosis limb [Not Recovered/Not Resolved]
  - Myalgia [Recovering/Resolving]
  - Nasopharyngitis [Recovered/Resolved]
  - Wrist fracture [Not Recovered/Not Resolved]
  - Arthralgia [Not Recovered/Not Resolved]
  - Vomiting [Unknown]
  - Intestinal haemorrhage [Not Recovered/Not Resolved]
  - Osteoporosis [Not Recovered/Not Resolved]
  - Liver function test increased [Recovering/Resolving]
  - Fatigue [Recovering/Resolving]
  - Spinal pain [Recovering/Resolving]
  - Condition aggravated [Not Recovered/Not Resolved]

NARRATIVE: CASE EVENT DATE: 20160318
